FAERS Safety Report 8274237-8 (Version None)
Quarter: 2012Q2

REPORT INFORMATION
  Report Type: 
  Country: None (occurrence: None)
  Receive Date: 20120411
  Receipt Date: 20120403
  Transmission Date: 20120825
  Serious: Yes (Other)
  Sender: FDA-Public Use
  Company Number: JP-BAYER-2011-121752

PATIENT
  Age: 62 Year
  Sex: Male
  Weight: 45 kg

DRUGS (11)
  1. NEXAVAR [Suspect]
     Indication: RENAL CELL CARCINOMA
     Dosage: 400 MG, BID
     Route: 048
     Dates: start: 20111206, end: 20120119
  2. MAGMITT [Concomitant]
     Indication: CONSTIPATION
     Dosage: DAILY DOSE 1980 MG
     Route: 048
  3. SUTENT [Concomitant]
     Dosage: DAILY DOSE 50 MG
     Dates: start: 20111107, end: 20111108
  4. TAMSULOSIN HCL [Concomitant]
     Indication: BENIGN PROSTATIC HYPERPLASIA
     Dosage: DAILY DOSE .2 MG
     Route: 048
  5. MOTILIUM [Concomitant]
     Indication: GASTRITIS
     Dosage: DAILY DOSE 30 MG
     Route: 048
  6. FAMOTIDINE [Concomitant]
     Indication: GASTRITIS
     Dosage: DAILY DOSE 40 MG
     Route: 048
  7. SUTENT [Concomitant]
     Dosage: DAILY DOSE 50 MG
     Route: 048
     Dates: start: 20111005, end: 20111021
  8. LENDORMIN [Concomitant]
     Indication: INSOMNIA
     Dosage: DAILY DOSE .25 MG
     Route: 048
  9. RISUMIC [Concomitant]
     Indication: HYPOTENSION
     Dosage: DAILY DOSE 20 MG
     Route: 048
  10. WARFARIN SODIUM [Concomitant]
     Indication: PROPHYLAXIS
     Dosage: DAILY DOSE 3.75 MG
     Route: 048
  11. TOLEDOMIN [Concomitant]
     Indication: DEPRESSION
     Dosage: DAILY DOSE 50 MG
     Route: 048

REACTIONS (3)
  - HYPOTHYROIDISM [None]
  - CHOLECYSTITIS [None]
  - HEPATIC FUNCTION ABNORMAL [None]
